FAERS Safety Report 8427724-3 (Version None)
Quarter: 2012Q2

REPORT INFORMATION
  Report Type: 
  Country: None (occurrence: None)
  Receive Date: 20120611
  Receipt Date: 20120530
  Transmission Date: 20120825
  Serious: Yes (Death)
  Sender: FDA-Public Use
  Company Number: US-MYLANLABS-2010S1004622

PATIENT
  Age: 46 Year
  Sex: Female
  Weight: 95.71 kg

DRUGS (9)
  1. GABAPENTIN [Concomitant]
  2. TRAZODONE HCL [Concomitant]
  3. WARFARIN [Concomitant]
  4. TUSSIN DM [Concomitant]
  5. ALPRAZOLAM [Concomitant]
  6. RANITIDINE [Concomitant]
  7. LAMICTAL [Concomitant]
  8. FENTANYL-100 [Suspect]
     Indication: BACK PAIN
     Dosage: CHANGE EVERY THREE DAYS
     Route: 062
     Dates: start: 20090307, end: 20090308
  9. KADIAN [Concomitant]

REACTIONS (3)
  - UNRESPONSIVE TO STIMULI [None]
  - TOXICITY TO VARIOUS AGENTS [None]
  - RESPIRATORY ARREST [None]
